FAERS Safety Report 18342581 (Version 1)
Quarter: 2020Q4

REPORT INFORMATION
  Report Type: Spontaneous
  Country: PL (occurrence: PL)
  Receive Date: 20201005
  Receipt Date: 20201005
  Transmission Date: 20210113
  Serious: Yes (Other)
  Sender: FDA-Public Use
  Company Number: PL-AMGEN-POLSP2020157535

PATIENT
  Age: 65 Year
  Sex: Male

DRUGS (8)
  1. VECTIBIX [Suspect]
     Active Substance: PANITUMUMAB
     Dosage: 440 MILLIGRAM (80% OF THE FULL DOSE)
     Route: 065
     Dates: start: 2018
  2. VECTIBIX [Suspect]
     Active Substance: PANITUMUMAB
     Dosage: 370 MILLIGRAM (65% OF THE DOSE)
     Route: 065
  3. VECTIBIX [Suspect]
     Active Substance: PANITUMUMAB
     Dosage: 300 MILLIGRAM (50% OF THE DOSE)
     Route: 065
  4. VECTIBIX [Suspect]
     Active Substance: PANITUMUMAB
     Indication: COLORECTAL CANCER
     Dosage: 570 MILLIGRAM
     Route: 065
     Dates: start: 201808
  5. FOLINIC ACID [Concomitant]
     Active Substance: LEUCOVORIN
     Indication: COLORECTAL CANCER
     Dosage: UNK
     Route: 065
     Dates: start: 201808
  6. 5-FU [FLUOROURACIL] [Concomitant]
     Active Substance: FLUOROURACIL
     Indication: COLORECTAL CANCER
     Dosage: UNK
     Route: 065
     Dates: start: 201808
  7. VECTIBIX [Suspect]
     Active Substance: PANITUMUMAB
     Dosage: UNK UNK, Q3WK (EVERY 3 WEEKS)
     Route: 065
     Dates: start: 202003
  8. OXALIPLATIN. [Concomitant]
     Active Substance: OXALIPLATIN
     Indication: COLORECTAL CANCER
     Dosage: UNK
     Route: 065
     Dates: start: 201808

REACTIONS (4)
  - Skin toxicity [Not Recovered/Not Resolved]
  - Pyrexia [Unknown]
  - Conjunctivitis [Unknown]
  - Neuropathy peripheral [Not Recovered/Not Resolved]

NARRATIVE: CASE EVENT DATE: 2018
